FAERS Safety Report 10046713 (Version 1)
Quarter: 2014Q1

REPORT INFORMATION
  Report Type: Spontaneous
  Country: SE (occurrence: SE)
  Receive Date: 20140331
  Receipt Date: 20140331
  Transmission Date: 20141002
  Serious: Yes (Other)
  Sender: FDA-Public Use
  Company Number: SE-BAYER-2014-047672

PATIENT
  Age: 21 Year
  Sex: Female

DRUGS (1)
  1. YASMIN [Suspect]
     Indication: CONTRACEPTION

REACTIONS (7)
  - Gastric ulcer haemorrhage [None]
  - Abdominal pain [None]
  - Urinary tract disorder [None]
  - Nausea [None]
  - Fatigue [None]
  - Headache [None]
  - Arthralgia [None]
